FAERS Safety Report 25045853 (Version 2)
Quarter: 2025Q2

REPORT INFORMATION
  Report Type: Spontaneous
  Country: IT (occurrence: IT)
  Receive Date: 20250306
  Receipt Date: 20250417
  Transmission Date: 20250717
  Serious: Yes (Hospitalization)
  Sender: ETON PHARMACEUTICALS
  Company Number: IT-ETON PHARMACEUTICALS, INC-2025ETO000085

PATIENT
  Age: 1 Month
  Sex: Female
  Weight: 3 kg

DRUGS (2)
  1. ALKINDI SPRINKLE [Suspect]
     Active Substance: HYDROCORTISONE
     Indication: Adrenogenital syndrome
     Route: 048
     Dates: start: 20250120, end: 20250130
  2. FLUDROCORTISONE ACETATE [Concomitant]
     Active Substance: FLUDROCORTISONE ACETATE
     Indication: Product used for unknown indication
     Route: 048
     Dates: start: 20241211

REACTIONS (2)
  - 17-hydroxyprogesterone increased [Recovered/Resolved]
  - Drug ineffective [Unknown]

NARRATIVE: CASE EVENT DATE: 20250127
